FAERS Safety Report 4850885-X (Version None)
Quarter: 2005Q4

REPORT INFORMATION
  Report Type: 
  Country: None (occurrence: None)
  Receive Date: 20051212
  Receipt Date: 20051205
  Transmission Date: 20060501
  Serious: Yes (Hospitalization)
  Sender: FDA-Public Use
  Company Number: US-GLAXOSMITHKLINE-A0584670A

PATIENT
  Age: 45 Year
  Sex: Female

DRUGS (7)
  1. PAXIL [Suspect]
     Indication: GENERALISED ANXIETY DISORDER
     Dosage: 20MG PER DAY
     Route: 048
     Dates: start: 20010101
  2. ZELNORM [Concomitant]
  3. REQUIP [Concomitant]
  4. NEXIUM [Concomitant]
  5. LOTREL [Concomitant]
     Route: 065
  6. CRESTOR [Concomitant]
  7. HYDROCHLOROTHIAZIDE [Concomitant]
     Route: 065

REACTIONS (6)
  - ABDOMINAL DISTENSION [None]
  - DYSPNOEA [None]
  - FLUID RETENTION [None]
  - MUSCLE TIGHTNESS [None]
  - PAIN IN EXTREMITY [None]
  - WEIGHT INCREASED [None]
